FAERS Safety Report 4716793-X (Version None)
Quarter: 2005Q3

REPORT INFORMATION
  Report Type: 
  Country: None (occurrence: None)
  Receive Date: 20050719
  Receipt Date: 20050406
  Transmission Date: 20060218
  Serious: Yes (Hospitalization)
  Sender: FDA-Public Use
  Company Number: US-GLAXOSMITHKLINE-A0552954B

PATIENT
  Age: 55 Year
  Sex: Female
  Weight: 57 kg

DRUGS (8)
  1. ECOTRIN ADULT LOW STRENGTH TABLETS [Suspect]
     Indication: MENOPAUSAL SYMPTOMS
     Route: 048
     Dates: start: 20041101, end: 20050401
  2. CALTRATE [Concomitant]
     Indication: MINERAL SUPPLEMENTATION
     Route: 048
  3. MULTI-VITAMIN [Concomitant]
     Indication: VITAMIN SUPPLEMENTATION
     Route: 048
  4. OMEGA 3 FISH OIL [Concomitant]
     Route: 048
  5. FIBERCON [Concomitant]
     Indication: GASTROINTESTINAL DISORDER
     Route: 048
  6. POLICOSANOL [Concomitant]
     Indication: BLOOD CHOLESTEROL INCREASED
     Route: 048
  7. GLUCOSAMINE/CHONDROITIN [Concomitant]
     Indication: ARTHRALGIA
     Route: 048
  8. REMIFEMIN [Concomitant]
     Indication: MENOPAUSAL SYMPTOMS
     Route: 048
     Dates: start: 19980101, end: 20050401

REACTIONS (4)
  - BREAST CANCER IN SITU [None]
  - BREAST MICROCALCIFICATION [None]
  - DRUG ABUSER [None]
  - LYMPHADENITIS [None]
